FAERS Safety Report 4568241-0 (Version None)
Quarter: 2005Q1

REPORT INFORMATION
  Report Type: 
  Country: None (occurrence: None)
  Receive Date: 20050131
  Receipt Date: 20050117
  Transmission Date: 20050727
  Serious: Yes (Hospitalization)
  Sender: FDA-Public Use
  Company Number: 2004099975

PATIENT
  Age: 60 Year
  Sex: Female
  Weight: 56 kg

DRUGS (2)
  1. LYRICA [Suspect]
     Indication: POST HERPETIC NEURALGIA
     Dosage: 75 MG, ORAL
     Route: 048
     Dates: end: 20041026
  2. VALORON N RETARD (NALOXONE TILIDINE) [Concomitant]

REACTIONS (26)
  - ADVERSE EVENT [None]
  - AGITATION [None]
  - CHILLS [None]
  - COORDINATION ABNORMAL [None]
  - DYSSTASIA [None]
  - DYSTONIA [None]
  - ELECTROENCEPHALOGRAM ABNORMAL [None]
  - ENCEPHALITIS [None]
  - EXANTHEM [None]
  - FACIAL NERVE DISORDER [None]
  - FACIAL PALSY [None]
  - GAIT DISTURBANCE [None]
  - GENERAL PHYSICAL HEALTH DETERIORATION [None]
  - HERPES ZOSTER [None]
  - HYPERKINESIA [None]
  - MYOCLONUS [None]
  - PAIN [None]
  - PLEOCYTOSIS [None]
  - PSYCHOMOTOR HYPERACTIVITY [None]
  - RADICULITIS [None]
  - RASH [None]
  - RASH VESICULAR [None]
  - RESTLESSNESS [None]
  - SKIN BURNING SENSATION [None]
  - SKIN EXFOLIATION [None]
  - SPEECH DISORDER [None]
